FAERS Safety Report 8780504 (Version 1)
Quarter: 2012Q4

REPORT INFORMATION
  Report Type: Spontaneous
  Country: US (occurrence: None)
  Receive Date: 20120828
  Receipt Date: 20120828
  Transmission Date: 20130627
  Serious: No
  Sender: FDA-Public Use
  Company Number: 2012-00149

PATIENT
  Age: 52 Year
  Sex: Male
  Weight: 87.09 kg

DRUGS (4)
  1. ZICAM COLD REMEDY NASAL SWABS [Suspect]
     Indication: HEAD COLD
     Dosage: 4 swabs 2-3 times per year
     Dates: start: 2007, end: 2008
  2. IBUPROFEN (OCCASIONAL) [Concomitant]
  3. DOXYCYLCINE [Concomitant]
  4. OTC SORE THROAT MEDICATION [Concomitant]

REACTIONS (2)
  - Hypogeusia [None]
  - Hyposmia [None]
